FAERS Safety Report 21548053 (Version 2)
Quarter: 2022Q4

REPORT INFORMATION
  Report Type: Spontaneous
  Country: TR (occurrence: TR)
  Receive Date: 20221103
  Receipt Date: 20221118
  Transmission Date: 20230113
  Serious: Yes (Death)
  Sender: FDA-Public Use
  Company Number: TR-TEVA-2022-TR-2821856

PATIENT
  Age: 10 Year
  Sex: Female

DRUGS (5)
  1. CARBOPLATIN [Suspect]
     Active Substance: CARBOPLATIN
     Indication: Glioma
     Dosage: 150 MG/M2 DAILY; ON DAYS 1 AND 15; THIRD CYCLE OF CHEMOTHERAPY
     Route: 065
  2. CISPLATIN [Suspect]
     Active Substance: CISPLATIN
     Indication: Glioma
     Dosage: 20 MG/M2 DAILY; ON DAYS 1-5; FIRST CYCLE OF CHEMOTHERAPY
     Route: 065
  3. ETOPOSIDE [Suspect]
     Active Substance: ETOPOSIDE
     Indication: Glioma
     Dosage: 50 MG/M2 DAILY; ON DAYS 1-5; FIRST CYCLE OF CHEMOTHERAPY
     Route: 065
  4. CYCLOPHOSPHAMIDE [Suspect]
     Active Substance: CYCLOPHOSPHAMIDE
     Indication: Glioma
     Dosage: 900 MG/M2 DAILY; ON DAYS 1-2; SECOND CYCLE OF CHEMOTHERAPY
     Route: 065
  5. VINCRISTINE [Suspect]
     Active Substance: VINCRISTINE
     Indication: Glioma
     Dosage: 1.5 MG/M2 DAILY; ON DAYS 1 OF SECOND CYCLE OF CHEMOTHERAPY; ON DAYS 1 AND 15 OF THIRD CYCLE OF CHEMO
     Route: 065

REACTIONS (1)
  - Drug ineffective [Fatal]
